FAERS Safety Report 16787186 (Version 1)
Quarter: 2019Q3

REPORT INFORMATION
  Report Type: Spontaneous
  Country: US (occurrence: US)
  Receive Date: 20190909
  Receipt Date: 20190909
  Transmission Date: 20191005
  Serious: No
  Sender: FDA-Public Use
  Company Number: US-SA-2019SA249999

PATIENT
  Sex: Female

DRUGS (4)
  1. DUPIXENT [Suspect]
     Active Substance: DUPILUMAB
     Indication: THALASSAEMIA ALPHA
     Dosage: 600 MG, 1X
     Route: 058
     Dates: start: 20190813, end: 20190813
  2. XOLAIR [Concomitant]
     Active Substance: OMALIZUMAB
     Dosage: 150 MG
  3. DUPIXENT [Suspect]
     Active Substance: DUPILUMAB
     Dosage: 300 MG, QOW
     Route: 058
     Dates: start: 20190827
  4. XOLAIR [Concomitant]
     Active Substance: OMALIZUMAB
     Dosage: 300 MG, 1X
     Dates: start: 20190620, end: 20190620

REACTIONS (3)
  - Product use in unapproved indication [Unknown]
  - Injection site erythema [Unknown]
  - Injection site mass [Unknown]

NARRATIVE: CASE EVENT DATE: 20190813
